FAERS Safety Report 19019828 (Version 1)
Quarter: 2021Q1

REPORT INFORMATION
  Report Type: Spontaneous
  Country: PL (occurrence: PL)
  Receive Date: 20210317
  Receipt Date: 20210317
  Transmission Date: 20210420
  Serious: Yes (Hospitalization)
  Sender: FDA-Public Use
  Company Number: PL-TEVA-2021-PL-1890600

PATIENT
  Age: 49 Year
  Sex: Male

DRUGS (14)
  1. METHOTREXATE. [Suspect]
     Active Substance: METHOTREXATE
     Indication: POST TRANSPLANT LYMPHOPROLIFERATIVE DISORDER
     Dosage: R?IVAC REGIMEN
     Route: 065
     Dates: start: 20151110, end: 20160218
  2. MYCOPHENOLATE MOFETIL. [Suspect]
     Active Substance: MYCOPHENOLATE MOFETIL
     Indication: IMMUNOSUPPRESSANT DRUG THERAPY
     Route: 065
  3. COLISTIN [Concomitant]
     Active Substance: COLISTIN
     Indication: ANTIBIOTIC THERAPY
     Dosage: 6 ML DAILY; 2 ML UNITS
     Route: 042
  4. TACROLIMUS. [Suspect]
     Active Substance: TACROLIMUS
     Indication: IMMUNOSUPPRESSANT DRUG THERAPY
     Route: 065
     Dates: end: 20160218
  5. RITUXIMAB. [Suspect]
     Active Substance: RITUXIMAB
     Indication: POST TRANSPLANT LYMPHOPROLIFERATIVE DISORDER
     Dosage: AS A PART OF R?CODOX AND R?IVAC REGIMEN; 4 CYCLES OF R?CODOX FOLLOWED BY R?IVAC
     Route: 065
     Dates: start: 20151110, end: 20160218
  6. AMIKACIN. [Concomitant]
     Active Substance: AMIKACIN
     Indication: ANTIBIOTIC THERAPY
     Dosage: 500 MILLIGRAM DAILY;
     Route: 065
  7. CYCLOPHOSPHAMIDE. [Suspect]
     Active Substance: CYCLOPHOSPHAMIDE
     Indication: POST TRANSPLANT LYMPHOPROLIFERATIVE DISORDER
     Dosage: 4 CYCLES OF R?CODOX
     Route: 065
     Dates: start: 20151110, end: 20160218
  8. CYTARABINE. [Suspect]
     Active Substance: CYTARABINE
     Indication: POST TRANSPLANT LYMPHOPROLIFERATIVE DISORDER
     Dosage: AS A PART OF R?CODOX AND R?IVAC REGIMEN; 4 CYCLES OF R?CODOX FOLLOWED BY R?IVAC
     Route: 065
     Dates: start: 20151110, end: 20160218
  9. VINCRISTINE [Suspect]
     Active Substance: VINCRISTINE
     Indication: POST TRANSPLANT LYMPHOPROLIFERATIVE DISORDER
     Dosage: 4 CYCLES OF R?CODOX
     Route: 065
     Dates: start: 20151110, end: 20160218
  10. EVEROLIMUS. [Suspect]
     Active Substance: EVEROLIMUS
     Indication: IMMUNOSUPPRESSANT DRUG THERAPY
     Route: 065
     Dates: end: 20160218
  11. IFOSFAMIDE. [Suspect]
     Active Substance: IFOSFAMIDE
     Indication: POST TRANSPLANT LYMPHOPROLIFERATIVE DISORDER
     Dosage: R?IVAC REGIMEN
     Route: 065
     Dates: start: 20151110, end: 20160218
  12. VANCOMYCIN [Suspect]
     Active Substance: VANCOMYCIN
     Indication: ANTIBIOTIC THERAPY
     Dosage: 6 GRAM DAILY;
     Route: 042
  13. DOXORUBICIN [Suspect]
     Active Substance: DOXORUBICIN
     Indication: POST TRANSPLANT LYMPHOPROLIFERATIVE DISORDER
     Dosage: 4 CYCLES OF R?CODOX
     Route: 065
     Dates: start: 20151110, end: 20160218
  14. MEROPENEM. [Concomitant]
     Active Substance: MEROPENEM
     Indication: ANTIBIOTIC THERAPY
     Dosage: 3 GRAM DAILY;
     Route: 065

REACTIONS (11)
  - Neutropenia [Unknown]
  - Epstein-Barr virus antibody positive [Unknown]
  - Cytomegalovirus test positive [Unknown]
  - Anaemia [Unknown]
  - Post transplant lymphoproliferative disorder [Unknown]
  - Stenotrophomonas infection [Recovered/Resolved]
  - Escherichia infection [Recovered/Resolved]
  - Drug ineffective [Unknown]
  - Febrile neutropenia [Unknown]
  - Pleural effusion [Unknown]
  - Staphylococcal infection [Recovered/Resolved]
